FAERS Safety Report 5210508-7 (Version None)
Quarter: 2007Q1

REPORT INFORMATION
  Report Type: 
  Country: None (occurrence: None)
  Receive Date: 20070117
  Receipt Date: 20070105
  Transmission Date: 20070707
  Serious: Yes (Hospitalization)
  Sender: FDA-Public Use
  Company Number: 2007AP00298

PATIENT
  Age: 66 Year
  Sex: Female

DRUGS (2)
  1. XYLOCAINE [Suspect]
     Route: 014
     Dates: end: 20061213
  2. ARTZ DISPO [Suspect]
     Indication: OSTEOARTHRITIS
     Dosage: 3 OR 4 INJECTIONS
     Route: 014
     Dates: end: 20061213

REACTIONS (1)
  - ARTHRITIS [None]
